FAERS Safety Report 11536779 (Version 1)
Quarter: 2015Q3

REPORT INFORMATION
  Report Type: Spontaneous
  Country: JP (occurrence: JP)
  Receive Date: 20150922
  Receipt Date: 20150922
  Transmission Date: 20151125
  Serious: Yes (Other)
  Sender: FDA-Public Use
  Company Number: JP-PFIZER INC-2015310791

PATIENT
  Age: 21 Year
  Sex: Male
  Weight: 65 kg

DRUGS (4)
  1. PROPOFOL. [Concomitant]
     Active Substance: PROPOFOL
     Indication: ANAESTHESIA
  2. METHYLPREDNISOLONE SODIUM SUCCINATE. [Suspect]
     Active Substance: METHYLPREDNISOLONE SODIUM SUCCINATE
     Indication: IGA NEPHROPATHY
     Dosage: 500 MG, DAILY FOR THREE DAYS
  3. REMIFENTANIL [Concomitant]
     Active Substance: REMIFENTANIL
     Indication: ANAESTHESIA
  4. PREDNISOLONE. [Suspect]
     Active Substance: PREDNISOLONE
     Indication: IGA NEPHROPATHY
     Dosage: 30 MG DAILY ON ALTERNATIVE DAYS
     Route: 048

REACTIONS (3)
  - Mental status changes postoperative [Recovered/Resolved]
  - Psychogenic seizure [Recovered/Resolved]
  - Substance-induced psychotic disorder [Recovered/Resolved]
